FAERS Safety Report 14522657 (Version 2)
Quarter: 2018Q1

REPORT INFORMATION
  Report Type: Report from Study
  Country: BR (occurrence: BR)
  Receive Date: 20180212
  Receipt Date: 20180219
  Transmission Date: 20180509
  Serious: Yes (Death)
  Sender: FDA-Public Use
  Company Number: PHHY2018BR018525

PATIENT
  Sex: Male
  Weight: 58 kg

DRUGS (3)
  1. FLAXIN [Concomitant]
     Indication: PROPHYLAXIS
     Dosage: 5 MG, UNK
     Route: 065
  2. SOMALGIN [Concomitant]
     Active Substance: ASPIRIN\DIHYDROXYALUMINUM AMINOACETATE ANHYDROUS\MAGNESIUM CARBONATE
     Indication: ANTICOAGULANT THERAPY
     Dosage: 100 MG, QD
     Route: 048
  3. DIOVAN HCT [Suspect]
     Active Substance: HYDROCHLOROTHIAZIDE\VALSARTAN
     Indication: HYPERTENSION
     Dosage: 1 DF (HYDROCHLOROTHIAZIDE 160 MG, VALSARTAN 25 MG), QD
     Route: 048

REACTIONS (4)
  - Urinary tract infection [Fatal]
  - Weight increased [Fatal]
  - Hypotension [Fatal]
  - Oesophageal carcinoma [Fatal]
